FAERS Safety Report 4887146-9 (Version None)
Quarter: 2006Q1

REPORT INFORMATION
  Report Type: 
  Country: None (occurrence: None)
  Receive Date: 20060120
  Receipt Date: 20050304
  Transmission Date: 20060701
  Serious: Yes (Hospitalization)
  Sender: FDA-Public Use
  Company Number: US-MERCK-0503USA00940

PATIENT
  Age: 72 Year
  Sex: Male
  Weight: 73 kg

DRUGS (2)
  1. VIOXX [Suspect]
     Indication: GOUT
     Route: 048
     Dates: start: 20020101, end: 20040901
  2. VIOXX [Suspect]
     Route: 048
     Dates: start: 20020101, end: 20040901

REACTIONS (3)
  - CEREBROVASCULAR ACCIDENT [None]
  - HYPERTENSION [None]
  - POLYTRAUMATISM [None]
